FAERS Safety Report 6701176-3 (Version None)
Quarter: 2010Q2

REPORT INFORMATION
  Report Type: 
  Country: None (occurrence: None)
  Receive Date: 20100428
  Receipt Date: 20100428
  Transmission Date: 20101027
  Serious: Yes (Other)
  Sender: FDA-Public Use
  Company Number: None

PATIENT
  Age: 53 Year
  Sex: Female
  Weight: 86.1834 kg

DRUGS (2)
  1. CARBAMAZAPINE 200MG UPC 2948284601 [Suspect]
     Indication: BACK PAIN
     Dosage: 200MG 3 TIMES PER DAY PO
     Route: 048
     Dates: start: 20091108, end: 20091210
  2. DORSAL COLUMN STIMULATOR  ANS -ST. JUDE HOSPITAL- [Suspect]
     Indication: BACK PAIN
     Dosage: SQ
     Dates: start: 20021101, end: 20100425

REACTIONS (7)
  - ABASIA [None]
  - DEVICE FAILURE [None]
  - FALL [None]
  - GAIT DISTURBANCE [None]
  - HEAD INJURY [None]
  - MUSCULAR WEAKNESS [None]
  - PAIN [None]
